FAERS Safety Report 4757726-X (Version None)
Quarter: 2005Q3

REPORT INFORMATION
  Report Type: 
  Country: None (occurrence: None)
  Receive Date: 20050830
  Receipt Date: 20050816
  Transmission Date: 20060218
  Serious: Yes (Other)
  Sender: FDA-Public Use
  Company Number: 8011443

PATIENT

DRUGS (2)
  1. EQUASYM [Suspect]
  2. CONCERTA [Suspect]

REACTIONS (3)
  - ABNORMAL BEHAVIOUR [None]
  - AGGRESSION [None]
  - INTENTIONAL SELF-INJURY [None]
